FAERS Safety Report 6347820-4 (Version None)
Quarter: 2009Q3

REPORT INFORMATION
  Report Type: 
  Country: None (occurrence: None)
  Receive Date: 20090910
  Receipt Date: 20090908
  Transmission Date: 20100115
  Serious: Yes (Other)
  Sender: FDA-Public Use
  Company Number: B0588611A

PATIENT
  Sex: Male

DRUGS (2)
  1. FLU H5N1 SPLIT + AS03 [Suspect]
     Dosage: 3.8MCG SINGLE DOSE
     Route: 030
     Dates: start: 20070515, end: 20070515
  2. AUGMENTIN [Suspect]
     Indication: BRONCHITIS
     Route: 048
     Dates: start: 20090212, end: 20090212

REACTIONS (2)
  - ANGIOEDEMA [None]
  - BRONCHOSPASM [None]
